FAERS Safety Report 9395331 (Version 1)
Quarter: 2013Q3

REPORT INFORMATION
  Report Type: Spontaneous
  Country: US (occurrence: US)
  Receive Date: 20130711
  Receipt Date: 20130711
  Transmission Date: 20140515
  Serious: No
  Sender: FDA-Public Use
  Company Number: US-ASTELLAS-2013US006603

PATIENT
  Age: 81 Year
  Sex: Female
  Weight: 52 kg

DRUGS (2)
  1. MYRBETRIQ [Suspect]
     Indication: POLLAKIURIA
     Dosage: 25 MG, UID/QD
     Route: 048
     Dates: start: 201305
  2. FLECAINIDE [Concomitant]
     Indication: CARDIAC DISORDER
     Dosage: 1 DF, UID/QD
     Route: 048

REACTIONS (1)
  - Diarrhoea [Not Recovered/Not Resolved]
